FAERS Safety Report 8553310-0 (Version None)
Quarter: 2012Q3

REPORT INFORMATION
  Report Type: 
  Country: None (occurrence: None)
  Receive Date: 20120731
  Receipt Date: 20120723
  Transmission Date: 20120928
  Serious: Yes (Other)
  Sender: FDA-Public Use
  Company Number: GB-B.I. PHARMACEUTICALS,INC./RIDGEFIELD-2012-UK-00965UK

PATIENT
  Age: 64 Year
  Sex: Female

DRUGS (1)
  1. SPIRIVA RESPIMAT [Suspect]
     Dosage: 10 MCG
     Route: 055

REACTIONS (2)
  - INCORRECT DOSE ADMINISTERED [None]
  - LOWER RESPIRATORY TRACT INFECTION [None]
